FAERS Safety Report 5133241-9 (Version None)
Quarter: 2006Q4

REPORT INFORMATION
  Report Type: 
  Country: None (occurrence: None)
  Receive Date: 20061018
  Receipt Date: 20061005
  Transmission Date: 20070319
  Serious: Yes (Hospitalization)
  Sender: FDA-Public Use
  Company Number: 2006094799

PATIENT
  Age: 74 Year
  Sex: Male
  Weight: 77 kg

DRUGS (10)
  1. SUTENT [Suspect]
     Indication: RENAL CELL CARCINOMA STAGE UNSPECIFIED
     Dosage: (50 MG, CYCLIC INTERVAL: 4 OF 6 WEEK), ORAL
     Route: 048
     Dates: start: 20060706, end: 20060724
  2. METOPROLOL TARTRATE [Concomitant]
  3. ISOSORBIDE MONONITRATE [Concomitant]
  4. CALCIUM [Concomitant]
  5. ESOMEPRAZOLE MAGNESIUM [Concomitant]
  6. PRAVASTATIN [Concomitant]
  7. OXAZEPAM [Concomitant]
  8. NITROGLYCERIN [Concomitant]
  9. SALMETEROL [Concomitant]
  10. ACETAMINOPHEN [Concomitant]

REACTIONS (15)
  - ANOREXIA [None]
  - ANXIETY [None]
  - APATHY [None]
  - BRADYPHRENIA [None]
  - CONFUSIONAL STATE [None]
  - CYSTITIS [None]
  - DISORIENTATION [None]
  - GAIT DISTURBANCE [None]
  - HEADACHE [None]
  - HYPERSOMNIA [None]
  - INCONTINENCE [None]
  - MUSCLE RIGIDITY [None]
  - SALIVARY HYPERSECRETION [None]
  - TREMOR [None]
  - VASCULAR DEMENTIA [None]
